FAERS Safety Report 10039094 (Version 1)
Quarter: 2014Q1

REPORT INFORMATION
  Report Type: Spontaneous
  Country: US (occurrence: None)
  Receive Date: 20140306
  Receipt Date: 20140306
  Transmission Date: 20141002
  Serious: Yes (Other)
  Sender: FDA-Public Use
  Company Number: 163-21880-13084112

PATIENT
  Age: 74 Year
  Sex: Female
  Weight: 67 kg

DRUGS (6)
  1. REVLIMID (LENALIDOMIDE) (5 MILLIGRAM, CAPSULES) [Suspect]
     Indication: PLASMA CELL MYELOMA
     Dosage: 5 MG, 21 IN 28 D, PO
     Route: 048
     Dates: start: 20130705
  2. LEVOTHYROXINE (LEVOTHYROXINE) [Concomitant]
  3. SPIRIVA (TIOTROPIUM BROMIDE) [Concomitant]
  4. FLONASE (FLUTICASONE PROPIONATE) [Concomitant]
  5. NEXIUM (ESOMEPRAZOLE) [Concomitant]
  6. ZOCOR (SIMVASTATIN) [Concomitant]

REACTIONS (2)
  - Rash [None]
  - Platelet count decreased [None]
